FAERS Safety Report 7232480-0 (Version None)
Quarter: 2011Q1

REPORT INFORMATION
  Report Type: 
  Country: None (occurrence: None)
  Receive Date: 20110119
  Receipt Date: 20100526
  Transmission Date: 20110831
  Serious: Yes (Other)
  Sender: FDA-Public Use
  Company Number: US-BAYER-200839635NA

PATIENT
  Sex: Female
  Weight: 67 kg

DRUGS (7)
  1. FISH OIL [Concomitant]
     Indication: SUPPLEMENTATION THERAPY
     Dosage: UNK UNK, QD
     Route: 048
     Dates: start: 20080901, end: 20081101
  2. UNCODEABLE ^UNCLASSIFIABLE^ [Concomitant]
  3. YAZ [Suspect]
     Dosage: 1 DF (DAILY DOSE), QD, ORAL
     Route: 048
     Dates: start: 20080911, end: 20081114
  4. CALCIUM [Concomitant]
     Indication: SUPPLEMENTATION THERAPY
     Dosage: UNK UNK, QD
     Route: 048
     Dates: start: 20080901, end: 20081101
  5. MULTI-VITAMIN [Concomitant]
     Indication: ASTHENIA
     Dosage: UNK UNK, QD
     Route: 048
     Dates: start: 20080901, end: 20081101
  6. NORTREL 7/7/7 [Concomitant]
     Indication: VAGINAL HAEMORRHAGE
  7. NORTREL 7/7/7 [Concomitant]
     Indication: ORAL CONTRACEPTION

REACTIONS (4)
  - CHEST PAIN [None]
  - DEEP VEIN THROMBOSIS [None]
  - PAIN IN EXTREMITY [None]
  - OEDEMA PERIPHERAL [None]
